FAERS Safety Report 8154730-9 (Version None)
Quarter: 2012Q1

REPORT INFORMATION
  Report Type: 
  Country: None (occurrence: None)
  Receive Date: 20120221
  Receipt Date: 20120206
  Transmission Date: 20120608
  Serious: Yes (Hospitalization)
  Sender: FDA-Public Use
  Company Number: PHHY2012AU007169

PATIENT
  Sex: Female

DRUGS (7)
  1. FLUTICASONE PROPIONATE/SALMETEROL [Concomitant]
     Indication: CHRONIC OBSTRUCTIVE PULMONARY DISEASE
     Dosage: 250/50 BD
  2. CLOZARIL [Suspect]
     Indication: SCHIZOPHRENIA
     Dosage: 750 MG, UNK
     Dates: start: 20070103
  3. TIOTROPIUM [Concomitant]
     Indication: CHRONIC OBSTRUCTIVE PULMONARY DISEASE
     Dosage: 18 UG, MANE
  4. CLOZARIL [Suspect]
     Dosage: 700 MG, UNK
     Dates: start: 20120202
  5. HYOSCINE HYDROBROMIDE [Concomitant]
     Indication: SALIVARY HYPERSECRETION
     Dosage: 0.3 MG, NOCTE
     Route: 002
  6. ROXITHROMYCIN [Concomitant]
     Indication: CHRONIC OBSTRUCTIVE PULMONARY DISEASE
     Dosage: 300 MG, DAILY
     Route: 048
  7. ATENOLOL [Concomitant]
     Indication: BLOOD PRESSURE INCREASED
     Dosage: 50 MG, MANE
     Route: 048

REACTIONS (3)
  - OVERDOSE [None]
  - ELECTROCARDIOGRAM QT INTERVAL ABNORMAL [None]
  - ELECTROCARDIOGRAM T WAVE ABNORMAL [None]
